FAERS Safety Report 8343680-0 (Version None)
Quarter: 2012Q2

REPORT INFORMATION
  Report Type: 
  Country: None (occurrence: None)
  Receive Date: 20120508
  Receipt Date: 20120416
  Transmission Date: 20120825
  Serious: Yes (Hospitalization)
  Sender: FDA-Public Use
  Company Number: FR-B.I. PHARMACEUTICALS,INC./RIDGEFIELD-2012-EU-02512GL

PATIENT
  Sex: Female

DRUGS (6)
  1. VINCRISTINE SULFATE [Concomitant]
     Dates: start: 20090901
  2. MERCAPTOPURINE [Suspect]
     Dosage: 100 MG
     Route: 048
     Dates: start: 20090512, end: 20091028
  3. METHOTREXATE [Concomitant]
     Dates: start: 20090512
  4. AZITHROMYCIN [Concomitant]
     Dates: start: 20090907, end: 20090911
  5. DEXAMETHASONE [Concomitant]
     Dates: start: 20090901
  6. TELMISARTAN [Suspect]
     Dosage: 0.5 ANZ
     Route: 048
     Dates: start: 20090815, end: 20091028

REACTIONS (5)
  - WEIGHT DECREASED [None]
  - TRANSAMINASES INCREASED [None]
  - GAMMA-GLUTAMYLTRANSFERASE INCREASED [None]
  - HYPERBILIRUBINAEMIA [None]
  - DIARRHOEA [None]
